FAERS Safety Report 9468705 (Version 2)
Quarter: 2013Q3

REPORT INFORMATION
  Report Type: Spontaneous
  Country: US (occurrence: None)
  Receive Date: 20130814
  Receipt Date: 20130820
  Transmission Date: 20140515
  Serious: Yes (Other)
  Sender: FDA-Public Use
  Company Number: 2013US002237

PATIENT
  Age: 72 Year
  Sex: Male
  Weight: 77 kg

DRUGS (7)
  1. ICLUSIG (PONATINIB) [Suspect]
     Indication: CHRONIC MYELOID LEUKAEMIA
     Route: 048
     Dates: start: 201301
  2. SPIRONOLACTONE (SPIRONOLACTONE) [Concomitant]
  3. METOPROLOL (METOPROLOL) [Concomitant]
  4. LASIX (FUROSEMIDE) [Concomitant]
  5. COUMADIN (WARFARIN SODIUM) [Concomitant]
  6. GLIPIZIDE (GLIPIZIDE) [Concomitant]
  7. HYDROCHLOROTHIAZIDE (HYDROCHLOROTHIAZIDE) [Concomitant]

REACTIONS (3)
  - Medical device complication [None]
  - Device malfunction [None]
  - Angiogram abnormal [None]
